FAERS Safety Report 6769273-4 (Version None)
Quarter: 2010Q2

REPORT INFORMATION
  Report Type: 
  Country: None (occurrence: None)
  Receive Date: 20100615
  Receipt Date: 20100607
  Transmission Date: 20101027
  Serious: Yes (Hospitalization)
  Sender: FDA-Public Use
  Company Number: DE-JNJFOC-20100603089

PATIENT
  Age: 56 Year
  Sex: Male
  Weight: 58.9 kg

DRUGS (16)
  1. DIPIPERON [Suspect]
     Indication: DRUG USE FOR UNKNOWN INDICATION
     Route: 048
     Dates: start: 20091012, end: 20091023
  2. RISPERDAL [Suspect]
     Indication: DRUG USE FOR UNKNOWN INDICATION
     Route: 048
     Dates: start: 20090121
  3. QUILONUM RETARD [Suspect]
     Indication: DRUG USE FOR UNKNOWN INDICATION
     Route: 048
     Dates: end: 20091023
  4. AKINETON [Suspect]
     Indication: DRUG USE FOR UNKNOWN INDICATION
     Route: 048
     Dates: end: 20091023
  5. LORAZEPAM [Suspect]
     Indication: DRUG USE FOR UNKNOWN INDICATION
     Route: 048
     Dates: start: 20090930
  6. LORAZEPAM [Suspect]
     Route: 048
     Dates: start: 20090930
  7. LORAZEPAM [Suspect]
     Route: 048
     Dates: start: 20090930
  8. LORAZEPAM [Suspect]
     Route: 048
     Dates: start: 20090930
  9. LORAZEPAM [Suspect]
     Route: 048
     Dates: start: 20090930
  10. LORAZEPAM [Suspect]
     Route: 048
     Dates: start: 20090930
  11. SEROQUEL XR [Suspect]
     Indication: DRUG USE FOR UNKNOWN INDICATION
     Route: 048
     Dates: start: 20091002, end: 20091023
  12. SEROQUEL XR [Suspect]
     Route: 048
     Dates: start: 20091002, end: 20091023
  13. SEROQUEL XR [Suspect]
     Route: 048
     Dates: start: 20091002, end: 20091023
  14. SEROQUEL XR [Suspect]
     Route: 048
     Dates: start: 20091002, end: 20091023
  15. SEROQUEL XR [Suspect]
     Route: 048
     Dates: start: 20091002, end: 20091023
  16. METOPROLOL SUCCINATE [Concomitant]
     Indication: DRUG USE FOR UNKNOWN INDICATION
     Route: 048

REACTIONS (9)
  - ABDOMINAL RIGIDITY [None]
  - APATHY [None]
  - BEDRIDDEN [None]
  - BLOOD CREATINE PHOSPHOKINASE INCREASED [None]
  - DEHYDRATION [None]
  - GENERAL PHYSICAL HEALTH DETERIORATION [None]
  - SUBILEUS [None]
  - URINARY RETENTION [None]
  - WHITE BLOOD CELL COUNT INCREASED [None]
